FAERS Safety Report 8305693-4 (Version None)
Quarter: 2012Q2

REPORT INFORMATION
  Report Type: 
  Country: None (occurrence: None)
  Receive Date: 20120423
  Receipt Date: 20120412
  Transmission Date: 20120825
  Serious: Yes (Hospitalization)
  Sender: FDA-Public Use
  Company Number: AU-JNJFOC-20120305942

PATIENT
  Sex: Female

DRUGS (6)
  1. SIMPONI [Suspect]
     Indication: RHEUMATOID ARTHRITIS
     Route: 058
     Dates: start: 20120215
  2. METHOTREXATE [Concomitant]
  3. FUROSEMIDE [Concomitant]
  4. PREDNISOLONE [Concomitant]
  5. SIMPONI [Suspect]
     Route: 058
     Dates: start: 20120315
  6. CELEBREX [Concomitant]

REACTIONS (3)
  - DRUG INEFFECTIVE [None]
  - BLISTER [None]
  - IMPLANT SITE INFECTION [None]
